FAERS Safety Report 14954586 (Version 2)
Quarter: 2018Q2

REPORT INFORMATION
  Report Type: Spontaneous
  Country: US (occurrence: US)
  Receive Date: 20180530
  Receipt Date: 20180613
  Transmission Date: 20180711
  Serious: Yes (Hospitalization, Other)
  Sender: FDA-Public Use
  Company Number: US-ELI_LILLY_AND_COMPANY-US201805010020

PATIENT
  Age: 36 Year
  Sex: Female

DRUGS (3)
  1. AMBRISENTAN [Suspect]
     Active Substance: AMBRISENTAN
     Indication: PULMONARY HYPERTENSION
     Dosage: 10 MG, DAILY
     Route: 065
     Dates: start: 20170404
  2. UPTRAVI [Suspect]
     Active Substance: SELEXIPAG
     Indication: PRODUCT USED FOR UNKNOWN INDICATION
     Dosage: 80 UG, BID
     Route: 065
  3. ADCIRCA [Suspect]
     Active Substance: TADALAFIL
     Indication: PULMONARY HYPERTENSION
     Dosage: 40 MG, DAILY
     Route: 065
     Dates: start: 20180116

REACTIONS (24)
  - Fear [Unknown]
  - Pain in jaw [Unknown]
  - Nausea [Unknown]
  - Hypotension [Unknown]
  - Pulmonary pain [Unknown]
  - Amnesia [Unknown]
  - Dermatitis contact [Unknown]
  - Pneumonia [Not Recovered/Not Resolved]
  - Fatigue [Unknown]
  - Pleurisy [Not Recovered/Not Resolved]
  - Depression [Unknown]
  - Swelling [Unknown]
  - Dyspnoea [Not Recovered/Not Resolved]
  - Blood potassium decreased [Unknown]
  - Blood potassium abnormal [Unknown]
  - Chest pain [Unknown]
  - Heart rate increased [Unknown]
  - Heart rate increased [Unknown]
  - Malaise [Unknown]
  - Dementia [Unknown]
  - Mental disorder [Not Recovered/Not Resolved]
  - Pain [Unknown]
  - Headache [Unknown]
  - Insomnia [Unknown]

NARRATIVE: CASE EVENT DATE: 20180103
